FAERS Safety Report 8903928 (Version 5)
Quarter: 2014Q1

REPORT INFORMATION
  Report Type: Spontaneous
  Country: US (occurrence: US)
  Receive Date: 20121112
  Receipt Date: 20140303
  Transmission Date: 20141002
  Serious: No
  Sender: FDA-Public Use
  Company Number: US-009507513-1211USA003849

PATIENT
  Sex: Male

DRUGS (3)
  1. PROPECIA [Suspect]
     Indication: ANDROGENETIC ALOPECIA
     Dosage: 1 MG, QD
     Route: 048
     Dates: start: 20030305
  2. PROPECIA [Suspect]
     Dosage: 1 MG, QD
     Route: 048
     Dates: start: 20100121
  3. ROGAINE [Concomitant]
     Indication: ANDROGENETIC ALOPECIA
     Dosage: UNK
     Dates: start: 20030305

REACTIONS (13)
  - Hypogonadism [Unknown]
  - Cognitive disorder [Not Recovered/Not Resolved]
  - Road traffic accident [Unknown]
  - Staphylococcal infection [Unknown]
  - Seborrhoeic dermatitis [Unknown]
  - Papule [Unknown]
  - Melanocytic naevus [Unknown]
  - Melanocytic naevus [Unknown]
  - Tinea cruris [Unknown]
  - Sexual dysfunction [Not Recovered/Not Resolved]
  - Libido decreased [Unknown]
  - Loss of libido [Unknown]
  - Erectile dysfunction [Unknown]
